FAERS Safety Report 24183118 (Version 1)
Quarter: 2024Q3

REPORT INFORMATION
  Report Type: Spontaneous
  Country: GB (occurrence: GB)
  Receive Date: 20240807
  Receipt Date: 20240807
  Transmission Date: 20241017
  Serious: Yes (Other)
  Sender: JOHNSON AND JOHNSON
  Company Number: None

PATIENT
  Age: 35 Year
  Sex: Female
  Weight: 85 kg

DRUGS (6)
  1. TRAMADOL HYDROCHLORIDE [Suspect]
     Active Substance: TRAMADOL HYDROCHLORIDE
     Indication: Adverse drug reaction
     Dosage: 2 DOSAGE FORM, EVERY 4 HRS
     Route: 065
     Dates: start: 20240730
  2. TRAMADOL HYDROCHLORIDE [Suspect]
     Active Substance: TRAMADOL HYDROCHLORIDE
     Indication: Tonsillitis
     Route: 065
  3. TRAMADOL HYDROCHLORIDE [Suspect]
     Active Substance: TRAMADOL HYDROCHLORIDE
     Indication: Pain
     Route: 065
  4. ACETAMINOPHEN [Suspect]
     Active Substance: ACETAMINOPHEN
     Indication: Product used for unknown indication
     Dosage: UNK
     Route: 065
  5. CLARITHROMYCIN [Concomitant]
     Active Substance: CLARITHROMYCIN
     Indication: Tonsillitis bacterial
     Dosage: UNK
     Route: 065
     Dates: start: 20240727
  6. CLARITHROMYCIN [Concomitant]
     Active Substance: CLARITHROMYCIN
     Indication: Pain

REACTIONS (4)
  - Heart rate decreased [Recovering/Resolving]
  - Dizziness [Unknown]
  - Nausea [Unknown]
  - Overdose [Unknown]

NARRATIVE: CASE EVENT DATE: 20240731
